FAERS Safety Report 25933486 (Version 1)
Quarter: 2025Q4

REPORT INFORMATION
  Report Type: Spontaneous
  Country: RU (occurrence: RU)
  Receive Date: 20251017
  Receipt Date: 20251017
  Transmission Date: 20260117
  Serious: Yes (Other)
  Sender: DR REDDYS
  Company Number: RU-RZN-RUS/2025/10/015299

PATIENT
  Age: 18 Year
  Sex: Female
  Weight: 54 kg

DRUGS (1)
  1. CIPROFLOXACIN [Suspect]
     Active Substance: CIPROFLOXACIN
     Indication: Swelling
     Dosage: 3 MG/ML 1 DROP ONCE A DAY IN EACH EYE
     Dates: start: 20250906, end: 20250906

REACTIONS (6)
  - Angina pectoris [Unknown]
  - Vision blurred [Unknown]
  - Hepatic pain [Recovered/Resolved]
  - Visual impairment [Unknown]
  - Conjunctivitis [Unknown]
  - Photophobia [Unknown]

NARRATIVE: CASE EVENT DATE: 20250906
